FAERS Safety Report 23426255 (Version 1)
Quarter: 2024Q1

REPORT INFORMATION
  Report Type: Spontaneous
  Country: GB (occurrence: GB)
  Receive Date: 20240122
  Receipt Date: 20240122
  Transmission Date: 20240410
  Serious: Yes (Other)
  Sender: FDA-Public Use
  Company Number: None

PATIENT
  Age: 23 Year

DRUGS (4)
  1. PREGABALIN [Suspect]
     Active Substance: PREGABALIN
     Route: 065
  2. COCAINE [Concomitant]
     Active Substance: COCAINE
  3. MORPHINE [Concomitant]
     Active Substance: MORPHINE
  4. CALCIUM CARBONATE [Concomitant]
     Active Substance: CALCIUM CARBONATE
     Dates: start: 20231219

REACTIONS (2)
  - Rash erythematous [Recovered/Resolved with Sequelae]
  - Hypersensitivity [Recovered/Resolved with Sequelae]
